FAERS Safety Report 6794211-8 (Version None)
Quarter: 2010Q2

REPORT INFORMATION
  Report Type: 
  Country: None (occurrence: None)
  Receive Date: 20100625
  Receipt Date: 20100601
  Transmission Date: 20101027
  Serious: No
  Sender: FDA-Public Use
  Company Number: JP-BIOGENIDEC-2007BI010556

PATIENT
  Age: 19 Year
  Sex: Female

DRUGS (2)
  1. AVONEX [Suspect]
     Indication: RELAPSING-REMITTING MULTIPLE SCLEROSIS
     Route: 030
     Dates: start: 20070207, end: 20080224
  2. PREDONINE [Concomitant]
     Dates: start: 20070123, end: 20070225

REACTIONS (3)
  - DRUG ERUPTION [None]
  - HEPATIC ENZYME INCREASED [None]
  - URTICARIA [None]
